FAERS Safety Report 6246070-X (Version None)
Quarter: 2009Q2

REPORT INFORMATION
  Report Type: 
  Country: None (occurrence: None)
  Receive Date: 20090626
  Receipt Date: 20090127
  Transmission Date: 20091009
  Serious: No
  Sender: FDA-Public Use
  Company Number: A0765460A

PATIENT
  Age: 59 Year
  Sex: Female

DRUGS (6)
  1. IMITREX [Suspect]
     Indication: HEADACHE
     Dosage: 50MG AS REQUIRED
     Route: 048
     Dates: start: 20060101
  2. GLUCOPHAGE [Concomitant]
  3. ACTOS [Concomitant]
  4. ASPIRIN [Concomitant]
  5. UNKNOWN MEDICATION [Concomitant]
  6. ARTHROTEC [Concomitant]

REACTIONS (1)
  - DRUG INEFFECTIVE [None]
